FAERS Safety Report 9023086 (Version 1)
Quarter: 2013Q1

REPORT INFORMATION
  Report Type: Spontaneous
  Country: US (occurrence: US)
  Receive Date: 20130120
  Receipt Date: 20130120
  Transmission Date: 20140127
  Serious: No
  Sender: FDA-Public Use
  Company Number: US-ALLERGAN-1214288US

PATIENT
  Age: 67 Year
  Sex: Female

DRUGS (1)
  1. BOTOX? [Suspect]
     Indication: JAW DISORDER
     Dosage: UNK, SINGLE
     Route: 030
     Dates: start: 20120614, end: 20120614

REACTIONS (3)
  - Swelling face [Recovered/Resolved]
  - Urticaria [Recovered/Resolved]
  - Hypersensitivity [Recovered/Resolved]
